FAERS Safety Report 14594617 (Version 2)
Quarter: 2019Q1

REPORT INFORMATION
  Report Type: Spontaneous
  Country: US (occurrence: US)
  Receive Date: 20180302
  Receipt Date: 20190306
  Transmission Date: 20190417
  Serious: No
  Sender: FDA-Public Use
  Company Number: US-AKORN PHARMACEUTICALS-2018AKN00027

PATIENT
  Sex: Male
  Weight: 99.77 kg

DRUGS (2)
  1. UNSPECIFIED ANTIBIOTIC [Suspect]
     Active Substance: UNSPECIFIED INGREDIENT
     Indication: UPPER RESPIRATORY TRACT INFECTION
     Dosage: UNK
     Dates: start: 2017
  2. MYORISAN [Suspect]
     Active Substance: ISOTRETINOIN
     Indication: ACNE
     Dosage: 80 MG, UNK
     Dates: start: 20171116, end: 201801

REACTIONS (3)
  - Upper respiratory tract infection [Recovering/Resolving]
  - Feeling hot [Recovering/Resolving]
  - Feeling abnormal [Not Recovered/Not Resolved]

NARRATIVE: CASE EVENT DATE: 2017
